FAERS Safety Report 8393076-0 (Version None)
Quarter: 2012Q2

REPORT INFORMATION
  Report Type: 
  Country: None (occurrence: None)
  Receive Date: 20120529
  Receipt Date: 20120404
  Transmission Date: 20120825
  Serious: No
  Sender: FDA-Public Use
  Company Number: US-ABBOTT-12P-163-0922640-00

PATIENT
  Age: 47 Year
  Sex: Male
  Weight: 68.1 kg

DRUGS (4)
  1. ANDROGEL [Suspect]
     Route: 061
     Dates: start: 20120201
  2. ANDROGEL [Suspect]
     Route: 061
     Dates: end: 20120404
  3. ANDROGEL [Suspect]
     Indication: BLOOD TESTOSTERONE DECREASED
     Route: 061
     Dates: start: 20111101, end: 20120201
  4. TESTOSTERONE (ANDROGEL 1% PUMP) [Concomitant]
     Indication: BLOOD TESTOSTERONE DECREASED
     Route: 061
     Dates: start: 20111001, end: 20111101

REACTIONS (1)
  - DRUG INEFFECTIVE [None]
